FAERS Safety Report 4554125-0 (Version None)
Quarter: 2005Q2

REPORT INFORMATION
  Report Type: 
  Country: None (occurrence: None)
  Receive Date: 20050113
  Receipt Date: 20050113
  Transmission Date: 20051028
  Serious: Yes (Hospitalization)
  Sender: FDA-Public Use
  Company Number: None

PATIENT
  Age: 54 Year
  Sex: Female
  Weight: 61.6892 kg

DRUGS (10)
  1. CAPECITABINE [Suspect]
     Indication: RENAL CELL CARCINOMA STAGE UNSPECIFIED
     Dosage: 2000MG  Q HS ORAL
     Route: 048
     Dates: start: 20040203, end: 20050111
  2. TEMOZOLOMIDE [Suspect]
     Indication: RENAL CELL CARCINOMA STAGE UNSPECIFIED
     Dosage: 120MG QHS ORAL
     Route: 048
     Dates: start: 20040203, end: 20050111
  3. THEOPHYLLINE [Concomitant]
  4. POTASSIUM [Concomitant]
  5. NORVASC [Concomitant]
  6. COUMADIN [Concomitant]
  7. ALLEGRA [Concomitant]
  8. LASIX [Concomitant]
  9. OXYCODONE HCL [Concomitant]
  10. THALIDOMIDE [Suspect]
     Dosage: 100 MG QHS

REACTIONS (3)
  - POST PROCEDURAL COMPLICATION [None]
  - RESPIRATORY DISORDER [None]
  - SEDATION [None]
